FAERS Safety Report 7584766-8 (Version None)
Quarter: 2011Q2

REPORT INFORMATION
  Report Type: 
  Country: None (occurrence: None)
  Receive Date: 20110630
  Receipt Date: 20110620
  Transmission Date: 20111010
  Serious: Yes (Other)
  Sender: FDA-Public Use
  Company Number: PHHY2010PL76877

PATIENT
  Age: 12 Year
  Sex: Female

DRUGS (6)
  1. AZATHIOPRINE [Suspect]
     Indication: NEPHROTIC SYNDROME
  2. CYCLOSPORINE [Interacting]
     Indication: NEPHROTIC SYNDROME
     Dosage: UNK
  3. PREDNISONE [Suspect]
     Indication: NEPHROTIC SYNDROME
  4. DEHYDRATION TREATMENT [Concomitant]
  5. MACROLIDES [Interacting]
     Indication: RESPIRATORY TRACT INFECTION
     Dosage: UNK
  6. ALBUMIN (HUMAN) [Concomitant]

REACTIONS (17)
  - CREATININE RENAL CLEARANCE DECREASED [None]
  - FOCAL SEGMENTAL GLOMERULOSCLEROSIS [None]
  - BLOOD UREA INCREASED [None]
  - NEPHROTIC SYNDROME [None]
  - DEHYDRATION [None]
  - DRUG INTERACTION [None]
  - TOTAL CHOLESTEROL/HDL RATIO INCREASED [None]
  - RESPIRATORY TRACT INFECTION [None]
  - BLOOD CREATININE INCREASED [None]
  - RALES [None]
  - GENERALISED OEDEMA [None]
  - IMMUNOSUPPRESSANT DRUG LEVEL INCREASED [None]
  - PROTEIN TOTAL DECREASED [None]
  - BLOOD TRIGLYCERIDES INCREASED [None]
  - ALBUMIN URINE PRESENT [None]
  - RENAL FAILURE ACUTE [None]
  - PROTEINURIA [None]
